FAERS Safety Report 19855320 (Version 1)
Quarter: 2021Q3

REPORT INFORMATION
  Report Type: Spontaneous
  Country: US (occurrence: US)
  Receive Date: 20210917
  Receipt Date: 20210917
  Transmission Date: 20211014
  Serious: Yes (Hospitalization)
  Sender: FDA-Public Use
  Company Number: None

PATIENT
  Age: 22 Year
  Sex: Female
  Weight: 141.2 kg

DRUGS (5)
  1. METHOTREXATE. [Suspect]
     Active Substance: METHOTREXATE
     Dates: end: 20210901
  2. ONCASPAR [Suspect]
     Active Substance: PEGASPARGASE
     Dosage: ?          OTHER DOSE:7500 UNIT;?
     Dates: end: 20210902
  3. CYCLOPHOSPHAMIDE. [Suspect]
     Active Substance: CYCLOPHOSPHAMIDE
     Dates: end: 20210615
  4. CYTARABINE. [Suspect]
     Active Substance: CYTARABINE
     Dates: end: 20210618
  5. VINCRISTINE SULFATE. [Suspect]
     Active Substance: VINCRISTINE SULFATE
     Dates: end: 20210901

REACTIONS (16)
  - Epistaxis [None]
  - Fatigue [None]
  - Pyrexia [None]
  - White blood cell count decreased [None]
  - Haemoglobin decreased [None]
  - Stomatitis [None]
  - Hepatic steatosis [None]
  - Pharyngeal swelling [None]
  - Haematochezia [None]
  - Nausea [None]
  - Red blood cell count decreased [None]
  - Abdominal pain [None]
  - Hepatomegaly [None]
  - Pineal gland cyst [None]
  - Dysphagia [None]
  - Vomiting [None]

NARRATIVE: CASE EVENT DATE: 20210907
